FAERS Safety Report 24554411 (Version 1)
Quarter: 2024Q4

REPORT INFORMATION
  Report Type: Spontaneous
  Country: US (occurrence: US)
  Receive Date: 20241028
  Receipt Date: 20241028
  Transmission Date: 20250115
  Serious: No
  Sender: PIRAMAL
  Company Number: US-PCCINC-2024-PPL-000804

PATIENT

DRUGS (1)
  1. BACLOFEN [Suspect]
     Active Substance: BACLOFEN
     Indication: Product used for unknown indication
     Dosage: 370 MICROGRAM PER DAY

REACTIONS (1)
  - Muscle spasticity [Not Recovered/Not Resolved]
